FAERS Safety Report 13834965 (Version 1)
Quarter: 2017Q3

REPORT INFORMATION
  Report Type: Report from Study
  Country: US (occurrence: US)
  Receive Date: 20170804
  Receipt Date: 20170804
  Transmission Date: 20171127
  Serious: Yes (Other)
  Sender: FDA-Public Use
  Company Number: US-LEO PHARMA-304130

PATIENT
  Age: 12 Year
  Sex: Male

DRUGS (2)
  1. PROTOPIC [Suspect]
     Active Substance: TACROLIMUS
     Indication: DERMATITIS ATOPIC
     Route: 061
     Dates: start: 2002, end: 20130130
  2. PROTOPIC [Suspect]
     Active Substance: TACROLIMUS
     Route: 061
     Dates: start: 2014

REACTIONS (1)
  - Juvenile melanoma benign [Recovered/Resolved]
